FAERS Safety Report 5916812-9 (Version None)
Quarter: 2008Q4

REPORT INFORMATION
  Report Type: 
  Country: None (occurrence: None)
  Receive Date: 20081013
  Receipt Date: 20081001
  Transmission Date: 20090506
  Serious: Yes (Death)
  Sender: FDA-Public Use
  Company Number: DE-PFIZER INC-2008083222

PATIENT
  Sex: Female

DRUGS (2)
  1. IDARUBICIN HCL [Suspect]
     Indication: ACUTE MYELOID LEUKAEMIA
     Dosage: DAILY DOSE:20MG
     Route: 042
     Dates: start: 20080624, end: 20080630
  2. RETINOL [Concomitant]

REACTIONS (2)
  - CARDIAC FAILURE ACUTE [None]
  - MYOCARDITIS [None]
